FAERS Safety Report 5579489-0 (Version None)
Quarter: 2008Q1

REPORT INFORMATION
  Report Type: 
  Country: None (occurrence: None)
  Receive Date: 20080102
  Receipt Date: 20071219
  Transmission Date: 20080703
  Serious: Yes (Hospitalization)
  Sender: FDA-Public Use
  Company Number: US-ELI_LILLY_AND_COMPANY-US200712002813

PATIENT
  Sex: Male

DRUGS (6)
  1. CYMBALTA [Suspect]
     Indication: DEPRESSION
     Dosage: 60 MG, DAILY (1/D)
     Route: 048
     Dates: start: 20060701
  2. RISPERDAL [Concomitant]
  3. LIPITOR [Concomitant]
  4. PRILOSEC [Concomitant]
  5. SEROQUEL [Concomitant]
  6. PERCOCET [Concomitant]
     Indication: PAIN

REACTIONS (4)
  - DIARRHOEA [None]
  - NAUSEA [None]
  - PAIN [None]
  - STAPHYLOCOCCAL INFECTION [None]
